FAERS Safety Report 11358570 (Version 1)
Quarter: 2015Q3

REPORT INFORMATION
  Report Type: Spontaneous
  Country: US (occurrence: US)
  Receive Date: 20150803
  Receipt Date: 20150803
  Transmission Date: 20151125
  Serious: No
  Sender: FDA-Public Use
  Company Number: US-ELI_LILLY_AND_COMPANY-US200904006050

PATIENT
  Age: 19 Year
  Sex: Male

DRUGS (1)
  1. ZYPREXA [Suspect]
     Active Substance: OLANZAPINE
     Indication: BIPOLAR DISORDER
     Dosage: 20 MG, EACH EVENING
     Dates: start: 200901

REACTIONS (7)
  - Nipple swelling [Unknown]
  - Nipple pain [Recovered/Resolved]
  - Blood prolactin increased [Not Recovered/Not Resolved]
  - Breast pain [Not Recovered/Not Resolved]
  - Blood triglycerides increased [Not Recovered/Not Resolved]
  - Breast enlargement [Unknown]
  - Breast mass [Not Recovered/Not Resolved]

NARRATIVE: CASE EVENT DATE: 20090415
